FAERS Safety Report 5757938-2 (Version None)
Quarter: 2008Q2

REPORT INFORMATION
  Report Type: 
  Country: None (occurrence: None)
  Receive Date: 20080530
  Receipt Date: 20080519
  Transmission Date: 20081010
  Serious: Yes (Hospitalization)
  Sender: FDA-Public Use
  Company Number: 233743J08USA

PATIENT
  Age: 60 Year
  Sex: Female

DRUGS (1)
  1. REBIF [Suspect]
     Indication: MULTIPLE SCLEROSIS
     Dosage: 44 MCG, 3 IN 1 WEEKS, SUBCUTANEOUS
     Route: 058
     Dates: start: 20030321

REACTIONS (5)
  - CONTUSION [None]
  - INJECTION SITE INFECTION [None]
  - INJECTION SITE REACTION [None]
  - SCAB [None]
  - STAPHYLOCOCCAL INFECTION [None]
